FAERS Safety Report 19470928 (Version 1)
Quarter: 2021Q2

REPORT INFORMATION
  Report Type: Spontaneous
  Country: US (occurrence: US)
  Receive Date: 20210628
  Receipt Date: 20210628
  Transmission Date: 20210717
  Serious: No
  Sender: FDA-Public Use
  Company Number: None

PATIENT
  Age: 71 Year
  Sex: Male
  Weight: 115.21 kg

DRUGS (1)
  1. STELARA [Suspect]
     Active Substance: USTEKINUMAB
     Indication: PSORIATIC ARTHROPATHY
     Dosage: INJECT 90MG  SUBCUTANEOUSLY ON WEEK 0 AND  WEEK 4   AS DIRECTED
     Route: 058
     Dates: start: 202106

REACTIONS (2)
  - Infection [None]
  - Pneumonia [None]
